FAERS Safety Report 6414749-2 (Version None)
Quarter: 2009Q4

REPORT INFORMATION
  Report Type: 
  Country: None (occurrence: None)
  Receive Date: 20091026
  Receipt Date: 20091026
  Transmission Date: 20100525
  Serious: Yes (Other)
  Sender: FDA-Public Use
  Company Number: None

PATIENT
  Age: 39 Year
  Sex: Female
  Weight: 61.2356 kg

DRUGS (1)
  1. LEVAQUIN [Suspect]
     Indication: UTERINE INFECTION
     Dosage: ONE TABLET EVERY 24 HOURS UNK
     Dates: start: 20091013, end: 20091020

REACTIONS (1)
  - ARTHRALGIA [None]
